FAERS Safety Report 15016919 (Version 2)
Quarter: 2019Q1

REPORT INFORMATION
  Report Type: Spontaneous
  Country: US (occurrence: US)
  Receive Date: 20180615
  Receipt Date: 20190207
  Transmission Date: 20190417
  Serious: Yes (Hospitalization, Other)
  Sender: FDA-Public Use
  Company Number: US-PFIZER INC-2018242735

PATIENT
  Age: 45 Year
  Sex: Male

DRUGS (4)
  1. PROCHLORPERAZINE. [Suspect]
     Active Substance: PROCHLORPERAZINE
     Indication: NAUSEA
     Dosage: 10 MG, UNK (FOR THE FIRST 6 DAYS OF CHEMOTHERAPY)
  2. CYTARABINE. [Suspect]
     Active Substance: CYTARABINE
     Indication: CHRONIC MYELOID LEUKAEMIA
     Dosage: UNK, 2X/DAY (TWELVE DOSES OF HIDAC, 3G/M2 GIVEN Q 12H)
  3. ALLOPURINOL. [Suspect]
     Active Substance: ALLOPURINOL
     Indication: HYPERURICAEMIA
     Dosage: UNK
  4. BUSULFAN. [Concomitant]
     Active Substance: BUSULFAN
     Indication: CHRONIC MYELOID LEUKAEMIA
     Dosage: UNK, CYCLIC (TREATED INTERMITTENTLY DURING THE CHRONIC PHASE)

REACTIONS (1)
  - Cholestasis [Unknown]
